FAERS Safety Report 19719491 (Version 4)
Quarter: 2022Q1

REPORT INFORMATION
  Report Type: Report from Study
  Country: US (occurrence: US)
  Receive Date: 20210818
  Receipt Date: 20220114
  Transmission Date: 20220423
  Serious: Yes (Other)
  Sender: FDA-Public Use
  Company Number: US-ABBVIE-21P-163-4025906-00

PATIENT
  Age: 71 Year
  Sex: Male
  Weight: 83.5 kg

DRUGS (10)
  1. IBRUTINIB [Suspect]
     Active Substance: IBRUTINIB
     Indication: Waldenstrom^s macroglobulinaemia
     Route: 048
     Dates: start: 20210527, end: 20210629
  2. IBRUTINIB [Suspect]
     Active Substance: IBRUTINIB
     Route: 048
     Dates: start: 20210701, end: 20210701
  3. IBRUTINIB [Suspect]
     Active Substance: IBRUTINIB
     Route: 048
     Dates: start: 20210915
  4. MAVORIXAFOR/X4P-001 [Concomitant]
     Indication: Waldenstrom^s macroglobulinaemia
     Route: 048
     Dates: start: 20210527, end: 20210629
  5. MAVORIXAFOR/X4P-001 [Concomitant]
     Route: 048
     Dates: start: 20210701, end: 20210721
  6. MAVORIXAFOR/X4P-001 [Concomitant]
     Route: 048
     Dates: start: 20210915
  7. APIXABAN [Concomitant]
     Active Substance: APIXABAN
     Indication: Product used for unknown indication
     Dates: start: 20210615
  8. NORVASC [Concomitant]
     Active Substance: AMLODIPINE BESYLATE
     Indication: Product used for unknown indication
     Dates: start: 20210417
  9. LISINOPRIL [Concomitant]
     Active Substance: LISINOPRIL
     Indication: Product used for unknown indication
     Dates: start: 20210417
  10. METOPROLOL SUCCINATE [Concomitant]
     Active Substance: METOPROLOL SUCCINATE
     Indication: Product used for unknown indication
     Dates: start: 20210615

REACTIONS (2)
  - Pneumonia cryptococcal [Not Recovered/Not Resolved]
  - Cryptococcal meningoencephalitis [Not Recovered/Not Resolved]

NARRATIVE: CASE EVENT DATE: 20210722
